FAERS Safety Report 20644010 (Version 1)
Quarter: 2022Q1

REPORT INFORMATION
  Report Type: Spontaneous
  Country: US (occurrence: US)
  Receive Date: 20220328
  Receipt Date: 20220328
  Transmission Date: 20220423
  Serious: No
  Sender: FDA-Public Use
  Company Number: US-NOVARTISTESTPH-NVSC2022US069906

PATIENT
  Age: 52 Year
  Sex: Female

DRUGS (2)
  1. COMBIPATCH [Suspect]
     Active Substance: ESTRADIOL\NORETHINDRONE ACETATE
     Indication: Menopausal symptoms
     Dosage: 1 DOSAGE FORM, EVERY 3-4 DAYS
     Route: 062
     Dates: start: 202110, end: 202202
  2. SYNTHROID [Concomitant]
     Active Substance: LEVOTHYROXINE SODIUM
     Indication: Product used for unknown indication
     Dosage: 88 UG
     Route: 065

REACTIONS (5)
  - Application site vesicles [Recovering/Resolving]
  - Application site scab [Recovering/Resolving]
  - Application site irritation [Recovering/Resolving]
  - Application site discolouration [Recovering/Resolving]
  - Application site inflammation [Recovered/Resolved]

NARRATIVE: CASE EVENT DATE: 20220201
